FAERS Safety Report 7007679-9 (Version None)
Quarter: 2010Q3

REPORT INFORMATION
  Report Type: 
  Country: None (occurrence: None)
  Receive Date: 20100922
  Receipt Date: 20100913
  Transmission Date: 20110219
  Serious: Yes (Other)
  Sender: FDA-Public Use
  Company Number: US-PFIZER INC-2009256619

PATIENT
  Sex: Male
  Weight: 122.4 kg

DRUGS (9)
  1. SUTENT [Suspect]
     Indication: RENAL CELL CARCINOMA
     Dosage: 50 MG, DAILY
     Route: 048
     Dates: start: 20090701
  2. SUTENT [Suspect]
     Indication: METASTASES TO LUNG
  3. DESVENLAFAXINE [Suspect]
     Indication: DEPRESSION
     Dosage: UNK
     Dates: start: 20080801
  4. DESVENLAFAXINE [Suspect]
     Indication: IRRITABILITY
  5. ATENOLOL [Concomitant]
     Indication: HYPERTENSION
     Dosage: UNK
  6. ATENOLOL [Concomitant]
     Dosage: 100 MG, UNK
  7. VERAPAMIL [Concomitant]
     Indication: HYPERTENSION
     Dosage: UNK
  8. VERAPAMIL [Concomitant]
     Dosage: 240 MG, UNK
  9. LISINOPRIL [Concomitant]
     Indication: HYPERTENSION
     Dosage: 20 MG, UNK

REACTIONS (17)
  - ABDOMINAL DISCOMFORT [None]
  - ARTERIOSCLEROSIS CORONARY ARTERY [None]
  - CHOLELITHIASIS [None]
  - DEPRESSION [None]
  - DIARRHOEA [None]
  - DISEASE PROGRESSION [None]
  - DIVERTICULITIS [None]
  - DIVERTICULUM [None]
  - DYSPEPSIA [None]
  - FLATULENCE [None]
  - HEPATIC STEATOSIS [None]
  - HIATUS HERNIA [None]
  - ILEUS [None]
  - IRRITABILITY [None]
  - RENAL CELL CARCINOMA [None]
  - THYROID FUNCTION TEST ABNORMAL [None]
  - VASCULAR CALCIFICATION [None]
